FAERS Safety Report 8099837-X (Version None)
Quarter: 2012Q1

REPORT INFORMATION
  Report Type: 
  Country: None (occurrence: None)
  Receive Date: 20120129
  Receipt Date: 20111031
  Transmission Date: 20120608
  Serious: No
  Sender: FDA-Public Use
  Company Number: US-ABBOTT-11P-163-0862625-00

PATIENT
  Age: 31 Year
  Sex: Female

DRUGS (2)
  1. LORATOB [Concomitant]
     Indication: BACK PAIN
  2. HUMIRA [Suspect]
     Indication: PSORIASIS
     Dates: start: 20100301

REACTIONS (4)
  - BACK PAIN [None]
  - NASOPHARYNGITIS [None]
  - URTICARIA [None]
  - CYSTITIS [None]
